FAERS Safety Report 19366958 (Version 3)
Quarter: 2021Q4

REPORT INFORMATION
  Report Type: Report from Study
  Country: KR (occurrence: KR)
  Receive Date: 20210603
  Receipt Date: 20211102
  Transmission Date: 20220303
  Serious: Yes (Other)
  Sender: FDA-Public Use
  Company Number: KR-KYOWAKIRIN-2021AKK009399

PATIENT
  Age: 56 Year
  Sex: Male

DRUGS (45)
  1. FILGRASTIM [Suspect]
     Active Substance: FILGRASTIM
     Indication: Product used for unknown indication
     Dosage: 0.7 UNK
     Route: 065
     Dates: start: 20110331, end: 20110331
  2. FILGRASTIM [Suspect]
     Active Substance: FILGRASTIM
     Dosage: 0.7 UNK
     Route: 065
     Dates: start: 20110407, end: 20110407
  3. FILGRASTIM [Suspect]
     Active Substance: FILGRASTIM
     Dosage: 0.7 UNK
     Route: 065
     Dates: start: 20110516, end: 20110516
  4. FILGRASTIM [Suspect]
     Active Substance: FILGRASTIM
     Dosage: 0.7 UNK
     Route: 065
     Dates: start: 20110607, end: 20110607
  5. FILGRASTIM [Suspect]
     Active Substance: FILGRASTIM
     Dosage: 0.7 UNK
     Route: 065
     Dates: start: 20110613, end: 20110613
  6. FILGRASTIM [Suspect]
     Active Substance: FILGRASTIM
     Dosage: 0.7 UNK
     Route: 065
     Dates: start: 20110705, end: 20110705
  7. DECITABINE [Concomitant]
     Active Substance: DECITABINE
     Indication: Product used for unknown indication
     Dosage: 20 UNK, QD
     Route: 065
     Dates: start: 20110321, end: 20110321
  8. DECITABINE [Concomitant]
     Active Substance: DECITABINE
     Dosage: 20 UNK, QD
     Route: 065
     Dates: start: 20110322, end: 20110322
  9. DECITABINE [Concomitant]
     Active Substance: DECITABINE
     Dosage: 20 UNK, QD
     Route: 065
     Dates: start: 20110323, end: 20110323
  10. DECITABINE [Concomitant]
     Active Substance: DECITABINE
     Dosage: 20 UNK, QD
     Route: 065
     Dates: start: 20110324, end: 20110324
  11. DECITABINE [Concomitant]
     Active Substance: DECITABINE
     Dosage: 20 UNK, QD
     Route: 065
     Dates: start: 20110325, end: 20110325
  12. DECITABINE [Concomitant]
     Active Substance: DECITABINE
     Dosage: 20 UNK, QD
     Route: 065
     Dates: start: 20110425, end: 20110425
  13. DECITABINE [Concomitant]
     Active Substance: DECITABINE
     Dosage: 20 UNK, QD
     Route: 065
     Dates: start: 20110426, end: 20110426
  14. DECITABINE [Concomitant]
     Active Substance: DECITABINE
     Dosage: 20 UNK, QD
     Route: 065
     Dates: start: 20110427, end: 20110427
  15. DECITABINE [Concomitant]
     Active Substance: DECITABINE
     Dosage: 20 UNK, QD
     Route: 065
     Dates: start: 20110428, end: 20110428
  16. DECITABINE [Concomitant]
     Active Substance: DECITABINE
     Dosage: 20 UNK, QD
     Route: 065
     Dates: start: 20110429, end: 20110429
  17. DECITABINE [Concomitant]
     Active Substance: DECITABINE
     Dosage: 20 UNK, QD
     Route: 065
     Dates: start: 20110523, end: 20110523
  18. DECITABINE [Concomitant]
     Active Substance: DECITABINE
     Dosage: 20 UNK, QD
     Route: 065
     Dates: start: 20110524, end: 20110524
  19. DECITABINE [Concomitant]
     Active Substance: DECITABINE
     Dosage: 20 UNK, QD
     Route: 065
     Dates: start: 20110525, end: 20110525
  20. DECITABINE [Concomitant]
     Active Substance: DECITABINE
     Dosage: 20 UNK, QD
     Route: 065
     Dates: start: 20110526, end: 20110526
  21. DECITABINE [Concomitant]
     Active Substance: DECITABINE
     Dosage: 20 UNK, QD
     Route: 065
     Dates: start: 20110527, end: 20110527
  22. DECITABINE [Concomitant]
     Active Substance: DECITABINE
     Dosage: 20 UNK, QD
     Route: 065
     Dates: start: 20110620, end: 20110620
  23. DECITABINE [Concomitant]
     Active Substance: DECITABINE
     Dosage: 20 UNK, QD
     Route: 065
     Dates: start: 20110621, end: 20110621
  24. DECITABINE [Concomitant]
     Active Substance: DECITABINE
     Dosage: 20 UNK, QD
     Route: 065
     Dates: start: 20110622, end: 20110622
  25. DECITABINE [Concomitant]
     Active Substance: DECITABINE
     Dosage: 20 UNK, QD
     Route: 065
     Dates: start: 20110623, end: 20110623
  26. DECITABINE [Concomitant]
     Active Substance: DECITABINE
     Dosage: 20 UNK, QD
     Route: 065
     Dates: start: 20110624, end: 20110624
  27. ACYCLOVIR [Concomitant]
     Active Substance: ACYCLOVIR
     Indication: Product used for unknown indication
     Dosage: 400 MG
     Route: 065
     Dates: start: 20110321, end: 20110328
  28. ACYCLOVIR [Concomitant]
     Active Substance: ACYCLOVIR
     Dosage: 400 MG
     Route: 065
     Dates: start: 20110331, end: 20110417
  29. ACYCLOVIR [Concomitant]
     Active Substance: ACYCLOVIR
     Dosage: 400 MG
     Route: 065
     Dates: start: 20110425, end: 20110523
  30. ACYCLOVIR [Concomitant]
     Active Substance: ACYCLOVIR
     Dosage: 400 MG
     Route: 065
     Dates: start: 20110523, end: 20110620
  31. ACYCLOVIR [Concomitant]
     Active Substance: ACYCLOVIR
     Dosage: 400 MG
     Route: 065
     Dates: start: 20110620, end: 20110719
  32. CIPROFLOXACIN [Concomitant]
     Active Substance: CIPROFLOXACIN
     Indication: Product used for unknown indication
     Dosage: 1000 MG
     Route: 065
     Dates: start: 20110321, end: 20110328
  33. CIPROFLOXACIN [Concomitant]
     Active Substance: CIPROFLOXACIN
     Dosage: 1000 MG
     Route: 065
     Dates: start: 20110331, end: 20110417
  34. CIPROFLOXACIN [Concomitant]
     Active Substance: CIPROFLOXACIN
     Dosage: 1000 MG
     Route: 065
     Dates: start: 20110425, end: 20110523
  35. CIPROFLOXACIN [Concomitant]
     Active Substance: CIPROFLOXACIN
     Dosage: 1000 MG
     Route: 065
     Dates: start: 20110523, end: 20110620
  36. CIPROFLOXACIN [Concomitant]
     Active Substance: CIPROFLOXACIN
     Dosage: 1000 MG
     Route: 065
     Dates: start: 20110620, end: 20110719
  37. MONTMORILLONITE [Concomitant]
     Active Substance: MONTMORILLONITE
     Indication: Product used for unknown indication
     Dosage: 60 UNK
     Route: 065
     Dates: start: 20110324, end: 20110328
  38. FLUCONAZOLE [Concomitant]
     Active Substance: FLUCONAZOLE
     Indication: Product used for unknown indication
     Dosage: 5 UNK
     Route: 065
     Dates: start: 20110418, end: 20110424
  39. FLUCONAZOLE [Concomitant]
     Active Substance: FLUCONAZOLE
     Dosage: 5 UNK
     Route: 065
     Dates: start: 20110425, end: 20110523
  40. FLUCONAZOLE [Concomitant]
     Active Substance: FLUCONAZOLE
     Dosage: 5 UNK
     Route: 065
     Dates: start: 20110523, end: 20110620
  41. FLUCONAZOLE [Concomitant]
     Active Substance: FLUCONAZOLE
     Dosage: 5 UNK
     Route: 065
     Dates: start: 20110620, end: 20110719
  42. ITRACONAZOLE [Concomitant]
     Active Substance: ITRACONAZOLE
     Indication: Product used for unknown indication
     Dosage: 40 UNK
     Route: 065
     Dates: start: 20110321, end: 20110328
  43. ITRACONAZOLE [Concomitant]
     Active Substance: ITRACONAZOLE
     Dosage: 40 UNK
     Route: 065
     Dates: start: 20110331, end: 20110417
  44. MAGNESIUM OXIDE [Concomitant]
     Active Substance: MAGNESIUM OXIDE
     Indication: Product used for unknown indication
     Dosage: 1000 MG
     Dates: start: 20110705, end: 20110719
  45. TRIMEBUTINE [Concomitant]
     Active Substance: TRIMEBUTINE
     Indication: Product used for unknown indication
     Dosage: 300 MG
     Route: 065
     Dates: start: 20110331, end: 20110417

REACTIONS (11)
  - Neutropenia [Recovered/Resolved]
  - White blood cell count decreased [Recovered/Resolved]
  - Diarrhoea [Recovered/Resolved]
  - Anaemia [Not Recovered/Not Resolved]
  - Neutropenia [Recovered/Resolved]
  - Neutropenia [Recovered/Resolved]
  - Neutropenia [Recovered/Resolved]
  - Thrombocytopenia [Recovered/Resolved]
  - Dyspepsia [Not Recovered/Not Resolved]
  - Dry mouth [Not Recovered/Not Resolved]
  - Face oedema [Not Recovered/Not Resolved]

NARRATIVE: CASE EVENT DATE: 20110321
